FAERS Safety Report 4294772-7 (Version None)
Quarter: 2004Q1

REPORT INFORMATION
  Report Type: 
  Country: None (occurrence: None)
  Receive Date: 20040213
  Receipt Date: 20020624
  Transmission Date: 20041129
  Serious: Yes (Hospitalization, Other)
  Sender: FDA-Public Use
  Company Number: WAES 0206USA02433

PATIENT
  Age: 82 Year
  Sex: Male
  Weight: 68 kg

DRUGS (3)
  1. VIOXX [Suspect]
     Indication: MUSCULOSKELETAL DISCOMFORT
     Route: 048
     Dates: start: 20010509, end: 20010701
  2. VIOXX [Suspect]
     Indication: BURSITIS
     Route: 048
     Dates: start: 20010509, end: 20010701
  3. VITAMINS (UNSPECIFIED) [Concomitant]

REACTIONS (16)
  - BENIGN PROSTATIC HYPERPLASIA [None]
  - DIPLOPIA [None]
  - DIVERTICULITIS [None]
  - ECZEMA [None]
  - GASTROINTESTINAL DISORDER [None]
  - HYPERTENSION [None]
  - KYPHOSIS [None]
  - LACUNAR INFARCTION [None]
  - LUNG ADENOCARCINOMA [None]
  - MACULAR DEGENERATION [None]
  - NEPHROLITHIASIS [None]
  - NOCTURIA [None]
  - NON-SMALL CELL LUNG CANCER [None]
  - RHINITIS ALLERGIC [None]
  - SCIATICA [None]
  - TRANSIENT ISCHAEMIC ATTACK [None]
